FAERS Safety Report 4508695-9 (Version None)
Quarter: 2004Q4

REPORT INFORMATION
  Report Type: 
  Country: None (occurrence: None)
  Receive Date: 20041122
  Receipt Date: 20041122
  Transmission Date: 20050328
  Serious: Yes (Hospitalization)
  Sender: FDA-Public Use
  Company Number: None

PATIENT
  Age: 50 Year
  Sex: Female
  Weight: 69.4003 kg

DRUGS (1)
  1. AVELOX [Suspect]
     Indication: OTITIS MEDIA
     Dosage: BID/PO
     Route: 048
     Dates: start: 20040301, end: 20040307

REACTIONS (10)
  - DESQUAMATION MOUTH [None]
  - HAEMORRHAGE [None]
  - LOCALISED EXFOLIATION [None]
  - MARKEDLY REDUCED DIETARY INTAKE [None]
  - MUCOUS MEMBRANE DISORDER [None]
  - OEDEMA PERIPHERAL [None]
  - ORAL DISCOMFORT [None]
  - ORAL PAIN [None]
  - PRURITUS [None]
  - WEIGHT DECREASED [None]
